FAERS Safety Report 9414242 (Version 1)
Quarter: 2013Q3

REPORT INFORMATION
  Report Type: Spontaneous
  Country: US (occurrence: US)
  Receive Date: 20130723
  Receipt Date: 20130723
  Transmission Date: 20140515
  Serious: No
  Sender: FDA-Public Use
  Company Number: US-009507513-1307USA008295

PATIENT
  Age: 17 Year
  Sex: Female
  Weight: 85.9 kg

DRUGS (1)
  1. NEXPLANON [Suspect]
     Indication: CONTRACEPTION
     Dosage: 1 DF, UNK
     Route: 059
     Dates: start: 20130325

REACTIONS (3)
  - Implant site pain [Unknown]
  - Implant site pruritus [Unknown]
  - Menstruation irregular [Unknown]
